FAERS Safety Report 14143162 (Version 1)
Quarter: 2017Q4

REPORT INFORMATION
  Report Type: Report from Study
  Country: US (occurrence: US)
  Receive Date: 20171030
  Receipt Date: 20171030
  Transmission Date: 20180321
  Serious: Yes (Hospitalization)
  Sender: FDA-Public Use
  Company Number: US-TEVA-810921ACC

PATIENT
  Age: 30 Year
  Sex: Female

DRUGS (3)
  1. RANITIDINE. [Concomitant]
     Active Substance: RANITIDINE
     Dosage: 300 MILLIGRAM DAILY;
  2. CLARAVIS [Suspect]
     Active Substance: ISOTRETINOIN
  3. BIOTIN OTC [Concomitant]
     Dosage: DAILY

REACTIONS (6)
  - Mood altered [Recovered/Resolved]
  - Crying [Recovered/Resolved]
  - Confusional state [Unknown]
  - Paranoia [Unknown]
  - Depression [Recovering/Resolving]
  - Psychiatric symptom [Recovered/Resolved]

NARRATIVE: CASE EVENT DATE: 20170901
